FAERS Safety Report 20024932 (Version 1)
Quarter: 2021Q4

REPORT INFORMATION
  Report Type: Report from Study
  Country: NL (occurrence: None)
  Receive Date: 20211102
  Receipt Date: 20211102
  Transmission Date: 20220304
  Serious: Yes (Other)
  Sender: FDA-Public Use
  Company Number: NL-ROCHE-2945360

PATIENT
  Age: 77 Year
  Sex: Male

DRUGS (2)
  1. VEMURAFENIB [Suspect]
     Active Substance: VEMURAFENIB
     Indication: Neoplasm
     Dosage: MOST CURRENT TREATMENT: 25/OCT/2021
     Route: 048
  2. COBIMETINIB [Suspect]
     Active Substance: COBIMETINIB
     Indication: Neoplasm
     Dosage: MOST CURRENT TREATMENT: 25/OCT/2021
     Route: 048

REACTIONS (1)
  - Second primary malignancy [Unknown]

NARRATIVE: CASE EVENT DATE: 20211008
